FAERS Safety Report 11895607 (Version 1)
Quarter: 2016Q1

REPORT INFORMATION
  Report Type: Spontaneous
  Country: US (occurrence: US)
  Receive Date: 20160107
  Receipt Date: 20160107
  Transmission Date: 20160526
  Serious: Yes (Hospitalization, Other)
  Sender: FDA-Public Use
  Company Number: US-PFIZER INC-2016003202

PATIENT
  Age: 56 Year
  Sex: Male

DRUGS (4)
  1. LYRICA [Suspect]
     Active Substance: PREGABALIN
     Indication: INFLAMMATION
     Dosage: 150 MG, 1X/DAY, (BEDTIME)
     Dates: start: 2003
  2. LYRICA [Suspect]
     Active Substance: PREGABALIN
     Indication: BACK PAIN
  3. CELECOXIB. [Concomitant]
     Active Substance: CELECOXIB
     Indication: PAIN IN EXTREMITY
  4. LYRICA [Suspect]
     Active Substance: PREGABALIN
     Indication: PAIN IN EXTREMITY
     Dosage: 150 MG, 2X/DAY

REACTIONS (4)
  - Sepsis [Unknown]
  - Apparent death [Unknown]
  - Staphylococcal infection [Unknown]
  - Necrotising fasciitis [Unknown]

NARRATIVE: CASE EVENT DATE: 20140619
